FAERS Safety Report 13076948 (Version 1)
Quarter: 2016Q4

REPORT INFORMATION
  Report Type: Spontaneous
  Country: BR (occurrence: BR)
  Receive Date: 20161230
  Receipt Date: 20161230
  Transmission Date: 20170207
  Serious: Yes (Hospitalization, Other)
  Sender: FDA-Public Use
  Company Number: BR-PFIZER INC-2016589355

PATIENT
  Age: 35 Year
  Sex: Female
  Weight: 85 kg

DRUGS (4)
  1. ADRIBLASTINA [Suspect]
     Active Substance: DOXORUBICIN HYDROCHLORIDE
     Indication: HODGKIN^S DISEASE
     Dosage: 49.5 MG, EVERY 14 DAYS
     Route: 042
     Dates: start: 20160714
  2. BLEOMYCIN SULFATE [Suspect]
     Active Substance: BLEOMYCIN SULFATE
     Indication: HODGKIN^S DISEASE
     Dosage: 19.68 IU, EVERY 14 DAYS
     Route: 042
     Dates: start: 20160714
  3. FAULDACAR [Suspect]
     Active Substance: DACARBAZINE
     Indication: HODGKIN^S DISEASE
     Dosage: 738 MG, UNK
     Route: 042
     Dates: start: 20160714
  4. FAULBLASTINA [Suspect]
     Active Substance: VINBLASTINE SULFATE
     Indication: HODGKIN^S DISEASE
     Dosage: 11.8 MG, EVERY 14 DAYS
     Route: 042
     Dates: start: 20160714

REACTIONS (4)
  - Tremor [None]
  - Paraesthesia [None]
  - Infection [Unknown]
  - Back pain [None]

NARRATIVE: CASE EVENT DATE: 20161215
